FAERS Safety Report 18681634 (Version 1)
Quarter: 2020Q4

REPORT INFORMATION
  Report Type: Report from Study
  Country: GB (occurrence: GB)
  Receive Date: 20201230
  Receipt Date: 20201230
  Transmission Date: 20210114
  Serious: Yes (Hospitalization, Other)
  Sender: FDA-Public Use
  Company Number: NVSC2020GB317196

PATIENT
  Sex: Female

DRUGS (1)
  1. HYRIMOZ [Suspect]
     Active Substance: ADALIMUMAB-ADAZ
     Indication: ANKYLOSING SPONDYLITIS
     Dosage: 40 MG, Q2W (FORTNIGHTLY)
     Route: 058
     Dates: start: 20200826

REACTIONS (5)
  - Ankylosing spondylitis [Unknown]
  - Infection [Unknown]
  - Pseudomonas infection [Recovered/Resolved]
  - Product dose omission issue [Unknown]
  - Pneumonia [Unknown]
